FAERS Safety Report 6724429-1 (Version None)
Quarter: 2010Q2

REPORT INFORMATION
  Report Type: 
  Country: None (occurrence: None)
  Receive Date: 20100513
  Receipt Date: 20100505
  Transmission Date: 20101027
  Serious: Yes (Other)
  Sender: FDA-Public Use
  Company Number: US-PFIZER INC-2010056918

PATIENT
  Sex: Male
  Weight: 111 kg

DRUGS (3)
  1. LIPITOR [Suspect]
     Indication: BLOOD CHOLESTEROL INCREASED
     Dosage: 10 MG, UNK
     Route: 048
  2. CABERGOLINE [Suspect]
     Indication: INSULIN-LIKE GROWTH FACTOR INCREASED
     Dosage: UNK
     Dates: start: 20080101
  3. VITAMINS [Concomitant]
     Dosage: UNK

REACTIONS (2)
  - BLOOD TESTOSTERONE DECREASED [None]
  - DRUG INEFFECTIVE FOR UNAPPROVED INDICATION [None]
